FAERS Safety Report 7647388-6 (Version None)
Quarter: 2011Q3

REPORT INFORMATION
  Report Type: 
  Country: None (occurrence: None)
  Receive Date: 20110729
  Receipt Date: 20110729
  Transmission Date: 20111222
  Serious: Yes (Hospitalization)
  Sender: FDA-Public Use
  Company Number: None

PATIENT
  Sex: Female
  Weight: 63 kg

DRUGS (4)
  1. TAXOL [Suspect]
     Dosage: 227 MG
  2. G-CSF (FILGRASTIM, AMGEN) [Suspect]
     Dosage: 6 MG
  3. IFOSFAMIDE [Suspect]
     Dosage: 2690 MG
  4. REQUIP [Concomitant]

REACTIONS (2)
  - DEHYDRATION [None]
  - PNEUMONIA [None]
